FAERS Safety Report 16641774 (Version 1)
Quarter: 2019Q3

REPORT INFORMATION
  Report Type: Report from Study
  Country: CA (occurrence: CA)
  Receive Date: 20190729
  Receipt Date: 20190729
  Transmission Date: 20191004
  Serious: Yes (Other)
  Sender: FDA-Public Use
  Company Number: CA-ROCHE-2361253

PATIENT

DRUGS (8)
  1. MYCOPHENOLATE MOFETIL. [Suspect]
     Active Substance: MYCOPHENOLATE MOFETIL
     Indication: PROPHYLAXIS AGAINST TRANSPLANT REJECTION
     Route: 065
  2. USTEKINUMAB [Suspect]
     Active Substance: USTEKINUMAB
     Indication: INFLAMMATORY BOWEL DISEASE
     Route: 065
  3. GOLIMUMAB [Suspect]
     Active Substance: GOLIMUMAB
     Indication: INFLAMMATORY BOWEL DISEASE
     Route: 065
  4. VEDOLIZUMAB [Suspect]
     Active Substance: VEDOLIZUMAB
     Indication: INFLAMMATORY BOWEL DISEASE
     Route: 065
  5. TACROLIMUS. [Suspect]
     Active Substance: TACROLIMUS
     Indication: PROPHYLAXIS AGAINST TRANSPLANT REJECTION
     Route: 065
  6. NATALIZUMAB [Suspect]
     Active Substance: NATALIZUMAB
     Indication: INFLAMMATORY BOWEL DISEASE
     Route: 065
  7. INFLIXIMAB [Suspect]
     Active Substance: INFLIXIMAB
     Indication: INFLAMMATORY BOWEL DISEASE
     Route: 065
  8. PREDNISONE. [Suspect]
     Active Substance: PREDNISONE
     Indication: PROPHYLAXIS AGAINST TRANSPLANT REJECTION
     Route: 065

REACTIONS (9)
  - JC polyomavirus test positive [Unknown]
  - Cholangitis infective [Unknown]
  - Clostridium difficile colitis [Unknown]
  - Clostridium difficile infection [Unknown]
  - Anal abscess [Unknown]
  - Pneumonia [Unknown]
  - Colon dysplasia [Unknown]
  - Cytomegalovirus viraemia [Unknown]
  - Cytomegalovirus colitis [Unknown]
